FAERS Safety Report 9188361 (Version 1)
Quarter: 2012Q4

REPORT INFORMATION
  Report Type: 
  Country: US (occurrence: US)
  Receive Date: 20121205
  Receipt Date: 20121205
  Transmission Date: 20130627
  Serious: Yes (Other)
  Sender: FDA-Public Use
  Company Number: PHEH2012US023689

PATIENT
  Sex: Female

DRUGS (5)
  1. AFINITOR [Suspect]
  2. ANASTROZOLE [Concomitant]
  3. OXYCODONE [Concomitant]
  4. SPIRIVA [Concomitant]
  5. MULTI-VIT [Concomitant]

REACTIONS (4)
  - Chronic obstructive pulmonary disease [Unknown]
  - Dizziness [Unknown]
  - Paraesthesia [Unknown]
  - Weight decreased [Unknown]
